FAERS Safety Report 9469405 (Version 1)
Quarter: 2013Q3

REPORT INFORMATION
  Report Type: Spontaneous
  Country: US (occurrence: US)
  Receive Date: 20130821
  Receipt Date: 20130821
  Transmission Date: 20140515
  Serious: No
  Sender: FDA-Public Use
  Company Number: US-009507513-1308USA005404

PATIENT
  Sex: Male

DRUGS (1)
  1. COSOPT PF [Suspect]
     Dosage: 1 DROP IN EACH EYE 2 TIMES DAILY
     Route: 047
     Dates: start: 20130718

REACTIONS (3)
  - Drug dose omission [Unknown]
  - Product packaging quantity issue [Unknown]
  - No adverse event [Unknown]
